FAERS Safety Report 4609059-X (Version None)
Quarter: 2005Q2

REPORT INFORMATION
  Report Type: 
  Country: None (occurrence: None)
  Receive Date: 20050228
  Receipt Date: 20040426
  Transmission Date: 20051028
  Serious: Yes (Hospitalization)
  Sender: FDA-Public Use
  Company Number: 1596

PATIENT
  Age: 83 Year
  Sex: Male

DRUGS (4)
  1. TARGRETIN [Suspect]
     Indication: MYCOSIS FUNGOIDES
     Dosage: 450 MG QD; PO
     Route: 048
     Dates: start: 20040402, end: 20040415
  2. DUTASTERID [Concomitant]
  3. INTERFERON ALPHA [Concomitant]
  4. LACTULOSE [Concomitant]

REACTIONS (1)
  - FACE OEDEMA [None]
